FAERS Safety Report 21499531 (Version 1)
Quarter: 2022Q4

REPORT INFORMATION
  Report Type: Spontaneous
  Country: FR (occurrence: FR)
  Receive Date: 20221024
  Receipt Date: 20221024
  Transmission Date: 20230113
  Serious: Yes (Other)
  Sender: FDA-Public Use
  Company Number: None

PATIENT
  Age: 72 Year
  Sex: Male

DRUGS (4)
  1. ELIQUIS [Suspect]
     Active Substance: APIXABAN
     Indication: Thrombosis prophylaxis
     Dosage: 1-0-1-0
     Route: 048
     Dates: start: 20220201
  2. ATARAX [Suspect]
     Active Substance: HYDROXYZINE HYDROCHLORIDE
     Indication: Cognitive disorder
     Route: 048
     Dates: start: 20220210
  3. CLOZAPINE [Suspect]
     Active Substance: CLOZAPINE
     Indication: Cognitive disorder
     Route: 048
     Dates: start: 20220201, end: 202204
  4. HALDOL [Suspect]
     Active Substance: HALOPERIDOL
     Indication: Cognitive disorder
     Dosage: 10 GOUTTES/J
     Route: 048
     Dates: start: 20220210

REACTIONS (3)
  - Urinary retention [Recovered/Resolved]
  - Haematuria [Recovered/Resolved]
  - Dysphagia [Recovered/Resolved]

NARRATIVE: CASE EVENT DATE: 20220211
